FAERS Safety Report 7569014-7 (Version None)
Quarter: 2011Q2

REPORT INFORMATION
  Report Type: 
  Country: None (occurrence: None)
  Receive Date: 20110623
  Receipt Date: 20110614
  Transmission Date: 20111010
  Serious: Yes (Hospitalization)
  Sender: FDA-Public Use
  Company Number: FR-ASTRAZENECA-2011SE36625

PATIENT
  Age: 69 Year
  Sex: Female

DRUGS (10)
  1. NEXIUM [Suspect]
     Route: 048
     Dates: end: 20110512
  2. ACUPAN [Concomitant]
     Route: 048
  3. NOVOMIX [Concomitant]
  4. ATORVASTATIN CALCIUM [Suspect]
     Route: 048
     Dates: end: 20110512
  5. LASIX [Concomitant]
     Route: 048
  6. MOTILIUM [Concomitant]
  7. NICARDIPINE HCL [Suspect]
     Route: 048
     Dates: end: 20110512
  8. ASPIRIN [Suspect]
     Route: 048
     Dates: end: 20110512
  9. NOVORAPID [Concomitant]
  10. NEURONTIN [Suspect]
     Dosage: 1200 TO 1600 MG PER DAY
     Route: 048
     Dates: end: 20110512

REACTIONS (2)
  - DEPRESSED LEVEL OF CONSCIOUSNESS [None]
  - COMA [None]
